FAERS Safety Report 5181049-0 (Version None)
Quarter: 2006Q4

REPORT INFORMATION
  Report Type: 
  Country: None (occurrence: None)
  Receive Date: 20061214
  Receipt Date: 20061214
  Transmission Date: 20070319
  Serious: No
  Sender: FDA-Public Use
  Company Number: None

PATIENT

DRUGS (1)
  1. FLOMAX [Suspect]

REACTIONS (6)
  - CHILLS [None]
  - INSOMNIA [None]
  - RESPIRATORY DISORDER [None]
  - THIRST [None]
  - TREMOR [None]
  - URINARY TRACT DISORDER [None]
